FAERS Safety Report 9626107 (Version 1)
Quarter: 2013Q4

REPORT INFORMATION
  Report Type: Spontaneous
  Country: US (occurrence: US)
  Receive Date: 20131016
  Receipt Date: 20131016
  Transmission Date: 20140711
  Serious: No
  Sender: FDA-Public Use
  Company Number: US-MYLANLABS-2013S1019782

PATIENT
  Age: 62 Year
  Sex: Female
  Weight: 61.24 kg

DRUGS (2)
  1. VALSARTAN AND HYDROCHLOROTHIAZIDE TABLETS [Suspect]
     Indication: HYPERTENSION
     Route: 048
     Dates: start: 201307
  2. LEVOTHYROXINE [Concomitant]
     Indication: HYPOTHYROIDISM
     Dosage: TAKEN FOR YEARS

REACTIONS (2)
  - Dizziness [Not Recovered/Not Resolved]
  - Lethargy [Not Recovered/Not Resolved]
